FAERS Safety Report 6316818-4 (Version None)
Quarter: 2009Q3

REPORT INFORMATION
  Report Type: 
  Country: None (occurrence: None)
  Receive Date: 20090820
  Receipt Date: 20090812
  Transmission Date: 20100115
  Serious: Yes (Hospitalization, Other)
  Sender: FDA-Public Use
  Company Number: JP-ROCHE-646852

PATIENT
  Sex: Female
  Weight: 51 kg

DRUGS (10)
  1. ROCEPHIN [Suspect]
     Indication: MUSCLE ABSCESS
     Route: 041
     Dates: start: 20090624, end: 20090717
  2. TAKEPRON [Concomitant]
     Route: 048
  3. ASPIRIN [Concomitant]
     Dosage: FORM: ENTERIC
     Route: 048
     Dates: end: 20090716
  4. LIVALO [Concomitant]
     Route: 048
     Dates: start: 20090710
  5. MAGNESIUM OXIDE [Concomitant]
     Dosage: FORM: ORAL FORMULATION (NOT OTHERWISE SPECIFIED)
     Route: 048
     Dates: start: 20090628
  6. CALONAL [Concomitant]
     Indication: PAIN
     Dosage: TAKEN AS NEEDED, TAKEN FOR PAIN, 0-3 TIMES A DAY
     Dates: start: 20090624
  7. NOVORAPID [Concomitant]
     Dosage: DOSE: 6 UT, 4-6UT?3 TIMES A DAY
     Route: 058
  8. LANTUS [Concomitant]
     Dosage: DOSE: 30 UT, 10-30UT ? ONCE A DAY
     Route: 058
  9. DALACIN [Concomitant]
     Dates: start: 20090624, end: 20090702
  10. PENTAZOCINE LACTATE [Concomitant]
     Indication: PAIN
     Dosage: TAKEN AS NEEDED, TAKEN FOR PAIN, 0-3 TIMES A DAY
     Dates: start: 20090624

REACTIONS (2)
  - BILE DUCT STONE [None]
  - CHOLELITHIASIS [None]
